FAERS Safety Report 23054672 (Version 1)
Quarter: 2023Q4

REPORT INFORMATION
  Report Type: Spontaneous
  Country: US (occurrence: US)
  Receive Date: 20231011
  Receipt Date: 20231011
  Transmission Date: 20240110
  Serious: No
  Sender: FDA-Public Use
  Company Number: US-BAYER-2023A130959

PATIENT
  Age: 67 Year
  Sex: Male

DRUGS (2)
  1. KOVALTRY [Suspect]
     Active Substance: ANTIHEMOPHILIC FACTOR, HUMAN RECOMBINANT
     Indication: Muscle haemorrhage
     Dosage: 4205 UNITS
  2. HEMOFIL [Concomitant]
     Active Substance: ANTIHEMOPHILIC FACTOR HUMAN

REACTIONS (2)
  - Product use in unapproved indication [None]
  - Back pain [None]

NARRATIVE: CASE EVENT DATE: 20230831
